FAERS Safety Report 6305965-9 (Version None)
Quarter: 2009Q3

REPORT INFORMATION
  Report Type: 
  Country: None (occurrence: None)
  Receive Date: 20090812
  Receipt Date: 20071212
  Transmission Date: 20100115
  Serious: Yes (Other)
  Sender: FDA-Public Use
  Company Number: US-ASTRAZENECA-2006UW12079

PATIENT
  Age: 21512 Day
  Sex: Male
  Weight: 134.3 kg

DRUGS (31)
  1. SEROQUEL [Suspect]
     Indication: ANXIETY
     Route: 048
     Dates: start: 20060120, end: 20060129
  2. SEROQUEL [Suspect]
     Indication: DEPRESSION
     Route: 048
     Dates: start: 20060120, end: 20060129
  3. SEROQUEL [Suspect]
     Indication: BIPOLAR DISORDER
     Route: 048
     Dates: start: 20060120, end: 20060129
  4. SEROQUEL [Suspect]
     Indication: THINKING ABNORMAL
     Route: 048
     Dates: start: 20060120, end: 20060129
  5. SEROQUEL [Suspect]
     Dosage: STRENGTH - 25 - 100 MG
     Route: 048
     Dates: start: 20060120
  6. SEROQUEL [Suspect]
     Dosage: STRENGTH - 25 - 100 MG
     Route: 048
     Dates: start: 20060120
  7. SEROQUEL [Suspect]
     Dosage: STRENGTH - 25 - 100 MG
     Route: 048
     Dates: start: 20060120
  8. SEROQUEL [Suspect]
     Dosage: STRENGTH - 25 - 100 MG
     Route: 048
     Dates: start: 20060120
  9. ZYPREXA [Suspect]
     Dates: start: 20040101, end: 20040401
  10. RISPERDAL [Concomitant]
  11. GEMFIBROZIL [Concomitant]
     Indication: BLOOD CHOLESTEROL
     Dosage: 600 - 1200 MG
     Route: 048
     Dates: start: 20060120
  12. LISINOPRIL [Concomitant]
     Indication: BLOOD PRESSURE
     Dosage: 40 - 120 MG DAILY
     Route: 048
     Dates: start: 20060120
  13. LORAZEPAM [Concomitant]
     Dosage: 2 - 4 MG DAILY
     Route: 048
     Dates: start: 20060120
  14. SORBITOL [Concomitant]
     Indication: CONSTIPATION
     Dosage: 70 PERCENT SOLUTION, TAKE 3 TABLESPOON BY MOUTH TWICE A DAY
     Route: 048
     Dates: start: 20050609
  15. TRAZODONE HCL [Concomitant]
     Indication: SLEEP DISORDER
     Dosage: 200 - 300 MG DAILY
     Route: 048
     Dates: start: 20050609
  16. TRAZODONE HCL [Concomitant]
     Indication: DEPRESSION
     Dosage: 200 - 300 MG DAILY
     Route: 048
     Dates: start: 20050609
  17. TRAZODONE HCL [Concomitant]
     Indication: ANXIETY
     Dosage: 200 - 300 MG DAILY
     Route: 048
     Dates: start: 20050609
  18. BUMEX [Concomitant]
     Route: 048
     Dates: start: 20050609
  19. CLOPIDOGREL BISULFATE [Concomitant]
     Indication: CARDIAC DISORDER
     Route: 048
     Dates: start: 20060407
  20. CLOPIDOGREL BISULFATE [Concomitant]
     Indication: CEREBROVASCULAR ACCIDENT
     Route: 048
     Dates: start: 20060407
  21. METOPROLOL TARTRATE [Concomitant]
     Indication: BLOOD PRESSURE
     Dosage: 50 - 100 MG DAILY
     Route: 048
     Dates: start: 20060407
  22. NITROGLYCERIN [Concomitant]
     Indication: CHEST PAIN
     Dosage: DISSOLVE ONE TABLET UNDER THE TONGUE EVERY 5 MINUTES AS NEEDED
     Route: 048
     Dates: start: 20060203
  23. PYRIDOXINE HCL [Concomitant]
     Route: 048
     Dates: start: 20060203
  24. RAMIPRIL [Concomitant]
     Indication: HYPERTENSION
     Route: 048
     Dates: start: 20060315
  25. SIMVASTATIN [Concomitant]
     Indication: BLOOD CHOLESTEROL
     Route: 048
     Dates: start: 20060315
  26. BUPROPION HCL [Concomitant]
     Indication: DEPRESSION
     Dosage: 100 - 200 MG DAILY
     Route: 048
     Dates: start: 20060407
  27. BUPROPION HCL [Concomitant]
     Indication: SMOKING CESSATION THERAPY
     Dosage: 100 - 200 MG DAILY
     Route: 048
     Dates: start: 20060407
  28. OMEPRAZOLE [Concomitant]
     Indication: GASTRITIS PROPHYLAXIS
     Route: 048
     Dates: start: 20060407
  29. ZOLPIDEM TARTRATE [Concomitant]
     Route: 048
     Dates: start: 20060407
  30. DIPHENHYDRAMINE HCL [Concomitant]
     Dosage: TAKE ONE CAPSULE BY MOUTH AT BEDTIME AS NEEDED
     Route: 048
     Dates: start: 20060508
  31. ISOSORBIDE MONONITRATE [Concomitant]
     Indication: CARDIAC DISORDER
     Route: 048
     Dates: start: 20060508

REACTIONS (3)
  - DIABETES MELLITUS [None]
  - DIABETIC RETINOPATHY [None]
  - TYPE 1 DIABETES MELLITUS [None]
